FAERS Safety Report 5530234-4 (Version None)
Quarter: 2007Q4

REPORT INFORMATION
  Report Type: 
  Country: None (occurrence: None)
  Receive Date: 20071130
  Receipt Date: 20071121
  Transmission Date: 20080405
  Serious: Yes (Hospitalization, Other)
  Sender: FDA-Public Use
  Company Number: JP-NOVOPROD-269540

PATIENT
  Age: 79 Year
  Sex: Female

DRUGS (4)
  1. NOVOLIN R [Suspect]
     Indication: TYPE 1 DIABETES MELLITUS
     Dates: start: 20040701
  2. NOVORAPID 30 MIX CHU [Suspect]
     Indication: TYPE 1 DIABETES MELLITUS
  3. HUMACART 3/7 [Concomitant]
     Indication: DRUG USE FOR UNKNOWN INDICATION
  4. NOVORAPID CHU [Concomitant]
     Indication: DRUG USE FOR UNKNOWN INDICATION

REACTIONS (3)
  - ANTI-INSULIN ANTIBODY INCREASED [None]
  - BLOOD GLUCOSE FLUCTUATION [None]
  - THYROIDITIS [None]
